FAERS Safety Report 23692838 (Version 1)
Quarter: 2024Q2

REPORT INFORMATION
  Report Type: Spontaneous
  Country: ZA (occurrence: ZA)
  Receive Date: 20240401
  Receipt Date: 20240401
  Transmission Date: 20240716
  Serious: Yes (Other)
  Sender: FDA-Public Use
  Company Number: ZA-PFIZER INC-PV202400041205

PATIENT
  Age: 52 Year
  Sex: Male

DRUGS (5)
  1. METHOTREXATE SODIUM [Suspect]
     Active Substance: METHOTREXATE SODIUM
     Dosage: 10 MG, WEEKLY
     Dates: start: 201701
  2. SULFASALAZINE [Suspect]
     Active Substance: SULFASALAZINE
     Dosage: 500 MG, 2X/DAY
     Dates: start: 201701
  3. LEFLUNOMIDE [Suspect]
     Active Substance: LEFLUNOMIDE
     Dosage: 10 MG, DAILY
     Dates: start: 201807
  4. NAPROXEN [Suspect]
     Active Substance: NAPROXEN
     Dosage: 500 MG, AS NEEDED
     Dates: start: 201807
  5. STELARA [Concomitant]
     Active Substance: USTEKINUMAB
     Dosage: 45 MG 12 WEEKLY
     Dates: start: 202303

REACTIONS (5)
  - Chronic kidney disease [Unknown]
  - Back pain [Recovering/Resolving]
  - Psoriasis [Recovering/Resolving]
  - Impaired quality of life [Recovering/Resolving]
  - Synovitis [Unknown]
